FAERS Safety Report 5322333-7 (Version None)
Quarter: 2007Q2

REPORT INFORMATION
  Report Type: 
  Country: None (occurrence: None)
  Receive Date: 20070220
  Receipt Date: 20061227
  Transmission Date: 20071010
  Serious: No
  Sender: FDA-Public Use
  Company Number: WAES 0612USA04117

PATIENT
  Age: 64 Year
  Sex: Male

DRUGS (3)
  1. JANUVIA [Suspect]
     Indication: DIABETES MELLITUS
     Dosage: 100 MG/DAILY/PO
     Route: 048
     Dates: start: 20061206, end: 20061227
  2. ACTOPLUS MET [Concomitant]
  3. [THERAPY UNSPECIFIED] [Concomitant]

REACTIONS (6)
  - ABDOMINAL PAIN [None]
  - BLOOD GLUCOSE INCREASED [None]
  - HOT FLUSH [None]
  - MALAISE [None]
  - NAUSEA [None]
  - RHINORRHOEA [None]
